FAERS Safety Report 10399515 (Version 1)
Quarter: 2014Q1

REPORT INFORMATION
  Report Type: Spontaneous
  Country: US (occurrence: None)
  Receive Date: 20130815
  Receipt Date: 20130815
  Transmission Date: 20141002
  Serious: Yes (Hospitalization, Other)
  Sender: FDA-Public Use
  Company Number: ADR-2012-01144

PATIENT
  Sex: Male

DRUGS (2)
  1. LIORESAL  INTRATHECAL [Suspect]
     Indication: MUSCLE SPASTICITY
     Dosage: 1410MCG DAY
  2. LIORESAL  INTRATHECAL [Suspect]
     Indication: CEREBRAL PALSY
     Dosage: 1410MCG DAY

REACTIONS (2)
  - Drug withdrawal syndrome [None]
  - Lethargy [None]
